FAERS Safety Report 6687881-6 (Version None)
Quarter: 2010Q2

REPORT INFORMATION
  Report Type: 
  Country: None (occurrence: None)
  Receive Date: 20100420
  Receipt Date: 20100326
  Transmission Date: 20101027
  Serious: Yes (Other)
  Sender: FDA-Public Use
  Company Number: NL-BAYER-201015762GPV

PATIENT
  Age: 47 Year
  Sex: Female

DRUGS (2)
  1. ALEMTUZUMAB [Suspect]
     Indication: MULTIPLE SCLEROSIS
     Route: 042
     Dates: start: 20090209, end: 20090213
  2. METHYLPREDNISOLONE [Concomitant]
     Dates: start: 20090209, end: 20090211

REACTIONS (1)
  - BASAL CELL CARCINOMA [None]
